FAERS Safety Report 6440996-X (Version None)
Quarter: 2009Q4

REPORT INFORMATION
  Report Type: 
  Country: None (occurrence: None)
  Receive Date: 20091113
  Receipt Date: 20091113
  Transmission Date: 20100525
  Serious: No
  Sender: FDA-Public Use
  Company Number: None

PATIENT
  Sex: Female
  Weight: 53.5244 kg

DRUGS (2)
  1. HYDROXYCHLOROQUINE 200 MG TABLETS TWICE A DAY UNKNOWN [Suspect]
     Dosage: 200MG BID ORAL
     Route: 048
  2. METHOTREXATE [Concomitant]

REACTIONS (2)
  - HEADACHE [None]
  - PRODUCT SUBSTITUTION ISSUE [None]
